FAERS Safety Report 12495732 (Version 4)
Quarter: 2016Q3

REPORT INFORMATION
  Report Type: Report from Study
  Country: US (occurrence: US)
  Receive Date: 20160624
  Receipt Date: 20160718
  Transmission Date: 20161109
  Serious: Yes (Hospitalization)
  Sender: FDA-Public Use
  Company Number: US-JNJFOC-20160617300

PATIENT
  Age: 57 Year
  Sex: Male
  Weight: 90.72 kg

DRUGS (3)
  1. STELARA [Suspect]
     Active Substance: USTEKINUMAB
     Indication: PSORIASIS
     Route: 058
     Dates: start: 20131009, end: 20160614
  2. ACITRETIN. [Concomitant]
     Active Substance: ACITRETIN
     Route: 065
  3. STELARA [Suspect]
     Active Substance: USTEKINUMAB
     Indication: PSORIASIS
     Route: 058
     Dates: start: 20120907, end: 20130716

REACTIONS (8)
  - Non-cardiac chest pain [Unknown]
  - Febrile neutropenia [Recovered/Resolved]
  - Hyponatraemia [Unknown]
  - Sinus tachycardia [Unknown]
  - Anaemia [Recovered/Resolved]
  - Back pain [Unknown]
  - Diarrhoea [Unknown]
  - Back pain [Unknown]

NARRATIVE: CASE EVENT DATE: 20151009
